FAERS Safety Report 8453817 (Version 3)
Quarter: 2013Q3

REPORT INFORMATION
  Report Type: Spontaneous
  Country: US (occurrence: US)
  Receive Date: 20120312
  Receipt Date: 20130928
  Transmission Date: 20140515
  Serious: Yes (Other)
  Sender: FDA-Public Use
  Company Number: US-BAYER-2012-021953

PATIENT
  Age: 27 Year
  Sex: Female
  Weight: 90.7 kg

DRUGS (1)
  1. MIRENA [Suspect]
     Indication: CONTRACEPTION
     Dosage: 20 MCG/24HR, CONT
     Route: 015
     Dates: start: 20100316, end: 20120305

REACTIONS (4)
  - Premature separation of placenta [Recovered/Resolved]
  - Pregnancy [Recovered/Resolved]
  - Amenorrhoea [None]
  - Drug ineffective [None]
